FAERS Safety Report 14366132 (Version 2)
Quarter: 2018Q2

REPORT INFORMATION
  Report Type: Report from Study
  Country: US (occurrence: US)
  Receive Date: 20180109
  Receipt Date: 20180412
  Transmission Date: 20180711
  Serious: Yes (Death, Other)
  Sender: FDA-Public Use
  Company Number: US-TESARO, INC.-US-2018TSO00073

PATIENT

DRUGS (3)
  1. ZEJULA [Suspect]
     Active Substance: NIRAPARIB
     Dosage: 100 MG, QD
     Route: 048
  2. ZEJULA [Suspect]
     Active Substance: NIRAPARIB
     Indication: OVARIAN CANCER
     Dosage: 200 MG, QD
     Route: 048
     Dates: start: 20170921
  3. POTASSIUM CHLORIDE. [Concomitant]
     Active Substance: POTASSIUM CHLORIDE
     Indication: PRODUCT USED FOR UNKNOWN INDICATION
     Dosage: UNK

REACTIONS (12)
  - Death [Fatal]
  - Abdominal discomfort [Unknown]
  - Pelvic discomfort [Unknown]
  - Abdominal distension [Recovering/Resolving]
  - Anaemia of chronic disease [Unknown]
  - Pelvic pain [Recovering/Resolving]
  - Dry mouth [Unknown]
  - Disease progression [Unknown]
  - Abdominal pain [Recovering/Resolving]
  - Nausea [Unknown]
  - Insomnia [Unknown]
  - Dizziness [Unknown]
